FAERS Safety Report 18641836 (Version 1)
Quarter: 2020Q4

REPORT INFORMATION
  Report Type: Spontaneous
  Country: US (occurrence: US)
  Receive Date: 20201218
  Receipt Date: 20201218
  Transmission Date: 20210114
  Serious: Yes (Hospitalization)
  Sender: FDA-Public Use
  Company Number: None

PATIENT
  Age: 85 Year
  Sex: Male
  Weight: 117.6 kg

DRUGS (10)
  1. BAMLANIVIMAB. [Suspect]
     Active Substance: BAMLANIVIMAB
     Indication: COVID-19
     Dosage: ?          OTHER FREQUENCY:ONE TIME;?
     Route: 042
     Dates: start: 20201214, end: 20201214
  2. ASPIRIN 81 MG DAILY [Concomitant]
  3. CHOLICALCIFEROL 2000 IU DAILY [Concomitant]
  4. LEVOTHYROXINE 50 MCG DAILY [Concomitant]
  5. CLOPIDOGREL 75 MG DAILY [Concomitant]
  6. METOPROLOL 12.5 MG BID [Concomitant]
  7. LOSARTAN 25 MG DAILY [Concomitant]
  8. ATORVASTATIN 40 MG DAILY [Concomitant]
  9. FLONASE NASAL SPRAY QAM [Concomitant]
  10. FUROSEMIDE 40 MG DAILY [Concomitant]

REACTIONS (4)
  - Intentional product use issue [None]
  - COVID-19 pneumonia [None]
  - Dyspnoea [None]
  - Asthenia [None]

NARRATIVE: CASE EVENT DATE: 20201215
